FAERS Safety Report 15943849 (Version 3)
Quarter: 2019Q3

REPORT INFORMATION
  Report Type: Report from Study
  Country: US (occurrence: US)
  Receive Date: 20190210
  Receipt Date: 20190719
  Transmission Date: 20191004
  Serious: No
  Sender: FDA-Public Use
  Company Number: PHEH2019US005943

PATIENT
  Sex: Female

DRUGS (1)
  1. GILENYA [Suspect]
     Active Substance: FINGOLIMOD HYDROCHLORIDE
     Indication: MULTIPLE SCLEROSIS
     Dosage: 0.5 MG, QD
     Route: 048

REACTIONS (6)
  - Eye inflammation [Unknown]
  - Influenza like illness [Unknown]
  - Pain [Unknown]
  - Headache [Unknown]
  - Pruritus [Unknown]
  - Alopecia [Unknown]
